FAERS Safety Report 25797384 (Version 1)
Quarter: 2025Q3

REPORT INFORMATION
  Report Type: Spontaneous
  Country: EU (occurrence: EU)
  Receive Date: 20250912
  Receipt Date: 20250912
  Transmission Date: 20251020
  Serious: Yes (Other)
  Sender: JOHNSON AND JOHNSON
  Company Number: EU-JNJFOC-20250905119

PATIENT
  Sex: Female

DRUGS (4)
  1. AMIVANTAMAB\HYALURONIDASE (HUMAN RECOMBINANT) [Suspect]
     Active Substance: AMIVANTAMAB\HYALURONIDASE (HUMAN RECOMBINANT)
     Indication: Non-small cell lung cancer
     Route: 058
  2. AMIVANTAMAB\HYALURONIDASE (HUMAN RECOMBINANT) [Suspect]
     Active Substance: AMIVANTAMAB\HYALURONIDASE (HUMAN RECOMBINANT)
     Route: 058
  3. LAZERTINIB [Suspect]
     Active Substance: LAZERTINIB
     Indication: Non-small cell lung cancer
     Route: 048
  4. LAZERTINIB [Suspect]
     Active Substance: LAZERTINIB
     Route: 048

REACTIONS (1)
  - Neurotoxicity [Unknown]
